FAERS Safety Report 9444066 (Version 1)
Quarter: 2013Q3

REPORT INFORMATION
  Report Type: Spontaneous
  Country: US (occurrence: None)
  Receive Date: 20130806
  Receipt Date: 20130806
  Transmission Date: 20140515
  Serious: Yes (Hospitalization)
  Sender: FDA-Public Use
  Company Number: None

PATIENT
  Age: 60 Year
  Sex: Male

DRUGS (1)
  1. RIBAVIRIN [Suspect]
     Indication: HEPATITIS C
     Dosage: 200 MG DAILY PO
     Route: 048
     Dates: start: 201305

REACTIONS (4)
  - Diarrhoea [None]
  - Dehydration [None]
  - Decreased appetite [None]
  - Renal disorder [None]
